FAERS Safety Report 5608641-0 (Version None)
Quarter: 2008Q1

REPORT INFORMATION
  Report Type: 
  Country: None (occurrence: None)
  Receive Date: 20080111
  Receipt Date: 20070914
  Transmission Date: 20080703
  Serious: Yes (Other)
  Sender: FDA-Public Use
  Company Number: HQWYE069629JAN03

PATIENT
  Sex: Female

DRUGS (1)
  1. PREMPRO [Suspect]
     Dosage: 0.625 MG/UNSPECIFIED, ORAL
     Route: 048
     Dates: start: 19960101, end: 19991201

REACTIONS (1)
  - BREAST CANCER FEMALE [None]
